FAERS Safety Report 22526625 (Version 1)
Quarter: 2023Q2

REPORT INFORMATION
  Report Type: Spontaneous
  Country: CN (occurrence: CN)
  Receive Date: 20230606
  Receipt Date: 20230606
  Transmission Date: 20230722
  Serious: Yes (Hospitalization, Other)
  Sender: FDA-Public Use
  Company Number: CN-PFIZER INC-PV202300098107

PATIENT
  Age: 2 Year
  Sex: Female

DRUGS (2)
  1. METHOTREXATE SODIUM [Suspect]
     Active Substance: METHOTREXATE SODIUM
     Indication: Chemotherapy
     Dosage: 0.15 G, 1X/DAY
     Route: 041
     Dates: start: 20230521, end: 20230522
  2. METHOTREXATE SODIUM [Suspect]
     Active Substance: METHOTREXATE SODIUM
     Dosage: 1.5 G, 1X/DAY
     Route: 041
     Dates: start: 20230521, end: 20230522

REACTIONS (2)
  - Liver injury [Unknown]
  - Transaminases increased [Unknown]

NARRATIVE: CASE EVENT DATE: 20230525
